FAERS Safety Report 6784851-4 (Version None)
Quarter: 2010Q2

REPORT INFORMATION
  Report Type: 
  Country: None (occurrence: None)
  Receive Date: 20100618
  Receipt Date: 20100608
  Transmission Date: 20101027
  Serious: Yes (Other)
  Sender: FDA-Public Use
  Company Number: 7001861

PATIENT
  Age: 47 Year
  Sex: Female
  Weight: 67 kg

DRUGS (7)
  1. REBIF [Suspect]
     Indication: MULTIPLE SCLEROSIS
     Dosage: 44 MCG, 3 IN 1, SUBCUTANEOUS; 22 MCG, 3 IN 1, SUBCUTANEOUS
     Route: 058
     Dates: start: 20091012, end: 20100328
  2. REBIF [Suspect]
     Indication: MULTIPLE SCLEROSIS
     Dosage: 44 MCG, 3 IN 1, SUBCUTANEOUS; 22 MCG, 3 IN 1, SUBCUTANEOUS
     Route: 058
     Dates: start: 20100411
  3. ESTRADIOL [Concomitant]
  4. LISINOPRIL [Concomitant]
  5. NEURONTIN [Concomitant]
  6. TRAZODONE HCL [Concomitant]
  7. CYCLOBENZAPRINE [Concomitant]

REACTIONS (8)
  - BALANCE DISORDER [None]
  - FATIGUE [None]
  - GAIT DISTURBANCE [None]
  - HYPOTHYROIDISM [None]
  - MEMORY IMPAIRMENT [None]
  - STRESS [None]
  - THYROID CANCER [None]
  - WEIGHT INCREASED [None]
